FAERS Safety Report 6844299-0 (Version None)
Quarter: 2010Q3

REPORT INFORMATION
  Report Type: 
  Country: None (occurrence: None)
  Receive Date: 20100715
  Receipt Date: 20100707
  Transmission Date: 20110219
  Serious: Yes (Other)
  Sender: FDA-Public Use
  Company Number: AU-SOLVAY-00309002949

PATIENT
  Age: 42 Year
  Sex: Female

DRUGS (3)
  1. CREON [Suspect]
     Indication: PRODUCT USED FOR UNKNOWN INDICATION
     Dosage: DAILY DOSE: 140 UNITS, AS USED: 10000, ONE CAPSULE WITH SNACKS AND 20000 TWO CAPSULES WITH MEALS.
     Route: 048
     Dates: start: 20090106, end: 20090515
  2. CREON [Suspect]
     Dosage: DAILY DOSE:  UNKNOWN
     Route: 048
     Dates: start: 20090101, end: 20090101
  3. CREON [Suspect]
     Dosage: DAILY DOSE:  UNKNOWN, AS USED: 10000, ONE CAPSULE WITH SNACKS AND 20000 TWO CAPSULES WITH MEALS.
     Route: 048
     Dates: start: 20090501

REACTIONS (3)
  - CONDITION AGGRAVATED [None]
  - DRUG INEFFECTIVE [None]
  - STEATORRHOEA [None]
